FAERS Safety Report 13130504 (Version 1)
Quarter: 2017Q1

REPORT INFORMATION
  Report Type: Spontaneous
  Country: IE (occurrence: IE)
  Receive Date: 20170119
  Receipt Date: 20170119
  Transmission Date: 20170428
  Serious: Yes (Hospitalization)
  Sender: FDA-Public Use
  Company Number: IE-ASTRAZENECA-2017SE03754

PATIENT
  Age: 26875 Day
  Sex: Female

DRUGS (10)
  1. AZITHROMYCIN ANHYDROUS. [Suspect]
     Active Substance: AZITHROMYCIN ANHYDROUS
     Dosage: GENERIC, DOSING UNKNOWN
     Route: 065
  2. LANSOPRAZOLE. [Suspect]
     Active Substance: LANSOPRAZOLE
     Dosage: GENERIC, DOSING UNKNOWN
     Route: 065
  3. LOSARTAN. [Suspect]
     Active Substance: LOSARTAN
     Dosage: DOSING UNKNOWN
     Route: 065
  4. SYMBICORT [Suspect]
     Active Substance: BUDESONIDE\FORMOTEROL FUMARATE DIHYDRATE
     Route: 055
  5. MONTELUKAST SODIUM. [Suspect]
     Active Substance: MONTELUKAST SODIUM
     Dosage: DOSING UNKNOWN
     Route: 065
  6. PARACETAMOL [Suspect]
     Active Substance: ACETAMINOPHEN
     Dosage: DOSING UNKNOWN
     Route: 065
  7. THEOPHYLLINE [Suspect]
     Active Substance: THEOPHYLLINE ANHYDROUS
     Dosage: DOSING UNKNOWN
     Route: 065
  8. ZEMAIRA [Suspect]
     Active Substance: .ALPHA.1-PROTEINASE INHIBITOR HUMAN
     Indication: ALPHA-1 ANTI-TRYPSIN DEFICIENCY
     Route: 042
     Dates: start: 20161010
  9. TERBINAFINE. [Suspect]
     Active Substance: TERBINAFINE
     Dosage: DOSING UNKNOWN
     Route: 065
  10. SALBUTAMOL [Suspect]
     Active Substance: ALBUTEROL
     Dosage: GENERIC, DOSING UNKNOWN
     Route: 065

REACTIONS (3)
  - Malaise [Recovering/Resolving]
  - Dizziness [Recovering/Resolving]
  - Vertigo [Recovering/Resolving]

NARRATIVE: CASE EVENT DATE: 20161216
